FAERS Safety Report 5353051-7 (Version None)
Quarter: 2007Q2

REPORT INFORMATION
  Report Type: 
  Country: None (occurrence: None)
  Receive Date: 20070611
  Receipt Date: 20070530
  Transmission Date: 20071010
  Serious: Yes (Hospitalization)
  Sender: FDA-Public Use
  Company Number: FR-PFIZER INC-2007044463

PATIENT
  Sex: Male

DRUGS (3)
  1. ZOLOFT [Suspect]
     Indication: OBSESSIVE-COMPULSIVE DISORDER
     Dosage: DAILY DOSE:100MG
     Dates: start: 20070201, end: 20070530
  2. ZOLOFT [Suspect]
     Indication: ANXIETY
  3. ATARAX [Concomitant]

REACTIONS (4)
  - FALL [None]
  - MALAISE [None]
  - PROTHROMBIN TIME RATIO DECREASED [None]
  - VERTIGO [None]
